FAERS Safety Report 25254315 (Version 1)
Quarter: 2025Q2

REPORT INFORMATION
  Report Type: Spontaneous
  Country: US (occurrence: US)
  Receive Date: 20250430
  Receipt Date: 20250430
  Transmission Date: 20250717
  Serious: No
  Sender: ROCHE
  Company Number: US-ROCHE-10000268481

PATIENT
  Age: 53 Year
  Sex: Female
  Weight: 141.07 kg

DRUGS (1)
  1. OCREVUS [Suspect]
     Active Substance: OCRELIZUMAB
     Indication: Multiple sclerosis
     Dosage: HER LATEST DOSE WAS ON 17-APR-2025.
     Route: 042
     Dates: start: 202410

REACTIONS (1)
  - Rash [Unknown]

NARRATIVE: CASE EVENT DATE: 20250421
